FAERS Safety Report 7047403-7 (Version None)
Quarter: 2010Q4

REPORT INFORMATION
  Report Type: 
  Country: None (occurrence: None)
  Receive Date: 20101015
  Receipt Date: 20101005
  Transmission Date: 20110411
  Serious: Yes (Death)
  Sender: FDA-Public Use
  Company Number: FR-ROCHE-733068

PATIENT
  Sex: Male

DRUGS (2)
  1. AVASTIN [Suspect]
     Dosage: FORM: INJECTION.
     Route: 065
  2. CAMPTOSAR [Suspect]
     Dosage: FORM: INJECTION.
     Route: 065

REACTIONS (3)
  - COLONIC OBSTRUCTION [None]
  - GASTROINTESTINAL PERFORATION [None]
  - HAEMORRHAGE [None]
